FAERS Safety Report 9358826 (Version 3)
Quarter: 2014Q1

REPORT INFORMATION
  Report Type: Spontaneous
  Country: US (occurrence: US)
  Receive Date: 20130620
  Receipt Date: 20140303
  Transmission Date: 20141002
  Serious: Yes (Hospitalization)
  Sender: FDA-Public Use
  Company Number: US-B.I. PHARMACEUTICALS,INC./RIDGEFIELD-2013-BI-17219BP

PATIENT
  Age: 82 Year
  Sex: Male
  Weight: 82.55 kg

DRUGS (9)
  1. PRADAXA [Suspect]
     Indication: ANTICOAGULANT THERAPY
     Dosage: 300 MG
     Route: 065
     Dates: start: 20110801, end: 20110813
  2. PRADAXA [Suspect]
     Indication: ATRIAL FIBRILLATION
     Dosage: 150 MG
     Route: 065
     Dates: start: 20110813, end: 20110903
  3. LASIX [Concomitant]
     Route: 065
     Dates: start: 200701
  4. LOSARTAN [Concomitant]
     Dosage: 100 MG
     Route: 065
     Dates: start: 200801
  5. POTASSIUM CHLORIDE [Concomitant]
     Dosage: 20 MEQ
     Route: 065
     Dates: start: 200901
  6. AMLODIPINE [Concomitant]
     Dosage: 10 MG
     Route: 065
     Dates: start: 200901
  7. ATENOLOL [Concomitant]
     Dosage: 10 MG
     Route: 065
     Dates: start: 1996
  8. MULTIVITAMIN [Concomitant]
     Route: 065
     Dates: start: 2000
  9. LANOXIN [Concomitant]
     Route: 065
     Dates: start: 1996

REACTIONS (3)
  - Lower gastrointestinal haemorrhage [Unknown]
  - Anaemia [Unknown]
  - Gastrointestinal haemorrhage [Recovered/Resolved]
